FAERS Safety Report 5809189-0 (Version None)
Quarter: 2008Q3

REPORT INFORMATION
  Report Type: 
  Country: None (occurrence: None)
  Receive Date: 20080714
  Receipt Date: 20080702
  Transmission Date: 20090109
  Serious: Yes (Other)
  Sender: FDA-Public Use
  Company Number: CH-PFIZER INC-2008055339

PATIENT
  Sex: Male
  Weight: 176 kg

DRUGS (3)
  1. GENOTROPIN [Suspect]
     Indication: HYPOPITUITARISM
     Dosage: DAILY DOSE:.2MG
     Dates: start: 20070101, end: 20070101
  2. TESTOVIRON [Concomitant]
  3. ELTROXIN [Concomitant]
     Route: 048

REACTIONS (1)
  - PITUITARY HAEMORRHAGE [None]
